FAERS Safety Report 9370065 (Version 1)
Quarter: 2013Q2

REPORT INFORMATION
  Report Type: Report from Study
  Country: BR (occurrence: BR)
  Receive Date: 20130626
  Receipt Date: 20130626
  Transmission Date: 20140414
  Serious: Yes (Other)
  Sender: FDA-Public Use
  Company Number: PHHY2013BR065725

PATIENT
  Sex: Female
  Weight: 47 kg

DRUGS (5)
  1. ACLASTA [Suspect]
     Indication: OSTEOPOROSIS
     Dosage: 5 MG, UNK
     Route: 042
     Dates: start: 2011, end: 2013
  2. ABLOK PLUS [Concomitant]
     Dosage: UNK UKN, UNK
  3. LIPISTAT//ATORVASTATIN CALCIUM [Concomitant]
     Dosage: UNK UKN, UNK
  4. OS-CAL [Concomitant]
     Dosage: UNK UKN, UNK
  5. LORATIL [Concomitant]
     Dosage: UNK UKN, UNK

REACTIONS (2)
  - Urinary tract infection [Recovering/Resolving]
  - Diarrhoea [Recovering/Resolving]
